FAERS Safety Report 5900736-7 (Version None)
Quarter: 2008Q3

REPORT INFORMATION
  Report Type: 
  Country: None (occurrence: None)
  Receive Date: 20080929
  Receipt Date: 20080917
  Transmission Date: 20090109
  Serious: Yes (Other)
  Sender: FDA-Public Use
  Company Number: DE-RANBAXY-2008RR-18091

PATIENT
  Sex: Female

DRUGS (1)
  1. CLINDAMYCINE RANBAXY 300 MG CAPSULES [Suspect]
     Indication: TOOTH ABSCESS
     Dosage: 1800 MG, QD
     Route: 048

REACTIONS (3)
  - DYSPHAGIA [None]
  - PRURITUS [None]
  - RASH [None]
